FAERS Safety Report 16376453 (Version 1)
Quarter: 2019Q2

REPORT INFORMATION
  Report Type: Report from Study
  Country: CA (occurrence: CA)
  Receive Date: 20190531
  Receipt Date: 20190531
  Transmission Date: 20190711
  Serious: Yes (Other)
  Sender: FDA-Public Use
  Company Number: CA-ROCHE-2258818

PATIENT
  Age: 55 Year
  Sex: Female

DRUGS (1)
  1. OCREVUS [Suspect]
     Active Substance: OCRELIZUMAB
     Indication: PRIMARY PROGRESSIVE MULTIPLE SCLEROSIS
     Dosage: 300 MG AT DAY 0 AND 14, THEN 600 MG EVERY 6 MONTHS
     Route: 042
     Dates: start: 20181127

REACTIONS (10)
  - Mobility decreased [Unknown]
  - Rhinorrhoea [Not Recovered/Not Resolved]
  - Lethargy [Unknown]
  - Visual impairment [Unknown]
  - Memory impairment [Unknown]
  - Stress [Unknown]
  - Gait disturbance [Unknown]
  - Rhinorrhoea [Unknown]
  - Fall [Unknown]
  - Walking aid user [Unknown]

NARRATIVE: CASE EVENT DATE: 201812
